FAERS Safety Report 8708696 (Version 3)
Quarter: 2012Q4

REPORT INFORMATION
  Report Type: 
  Country: US (occurrence: US)
  Receive Date: 20120806
  Receipt Date: 20120930
  Transmission Date: 20130627
  Serious: No
  Sender: FDA-Public Use
  Company Number: US-ROXANE LABORATORIES, INC.-2012-RO-01583RO

PATIENT
  Age: 30 None
  Sex: Male

DRUGS (7)
  1. METHADONE [Suspect]
     Indication: PAIN
     Route: 048
     Dates: start: 201206
  2. ACYCLOVIR [Concomitant]
     Dosage: 4800 mg
  3. BUPROPION [Concomitant]
     Dosage: 300 mg
  4. ASPIRIN [Concomitant]
     Indication: PAIN
  5. METOPROLOL SUCCINATE ER [Concomitant]
     Dosage: 100 mg
  6. BENADRYL [Concomitant]
  7. MIRALAX [Concomitant]

REACTIONS (3)
  - Drug withdrawal syndrome [Recovered/Resolved]
  - Drug ineffective [Unknown]
  - Product quality issue [Unknown]
